FAERS Safety Report 8033912-0 (Version None)
Quarter: 2012Q1

REPORT INFORMATION
  Report Type: 
  Country: None (occurrence: None)
  Receive Date: 20120110
  Receipt Date: 20120102
  Transmission Date: 20120608
  Serious: Yes (Death)
  Sender: FDA-Public Use
  Company Number: US-BAYER-2012-001869

PATIENT
  Age: 59 Year
  Sex: Female

DRUGS (7)
  1. DIPHENHYDRAMINE HCL [Suspect]
  2. ACETAMINOPHEN [Suspect]
  3. ACETAMINOPHEN AND HYDROCODONE BITARTRATE [Suspect]
  4. PROMETHAZINE [Suspect]
  5. METHADONE HCL [Suspect]
  6. DROPERIDOL/FENTANYL [Suspect]
  7. PROCHLORPERAZINE [Suspect]

REACTIONS (1)
  - TOXICITY TO VARIOUS AGENTS [None]
